FAERS Safety Report 19097349 (Version 1)
Quarter: 2021Q2

REPORT INFORMATION
  Report Type: Spontaneous
  Country: GB (occurrence: GB)
  Receive Date: 20210406
  Receipt Date: 20210406
  Transmission Date: 20210717
  Serious: Yes (Other)
  Sender: FDA-Public Use
  Company Number: GB-BAYER-2021-109264

PATIENT

DRUGS (2)
  1. APROTININ [Suspect]
     Active Substance: APROTININ
     Indication: HEART TRANSPLANT
     Dosage: UNK
     Route: 065
  2. APROTININ [Suspect]
     Active Substance: APROTININ
     Indication: LIVER TRANSPLANT

REACTIONS (4)
  - Off label use [None]
  - Haemorrhage [Unknown]
  - Coagulopathy [Unknown]
  - Product use in unapproved indication [Unknown]
